FAERS Safety Report 9744877 (Version 3)
Quarter: 2014Q3

REPORT INFORMATION
  Report Type: Report from Study
  Country: DE (occurrence: DE)
  Receive Date: 20131211
  Receipt Date: 20140911
  Transmission Date: 20150326
  Serious: Yes (Death, Life-Threatening, Other)
  Sender: FDA-Public Use
  Company Number: DE-ROCHE-1301566

PATIENT
  Age: 66 Year
  Sex: Female
  Weight: 59 kg

DRUGS (11)
  1. FLUOROURACIL. [Concomitant]
     Active Substance: FLUOROURACIL
     Dosage: DOSAGES BETWEEN 3300 AND 3984MG
     Route: 041
     Dates: start: 20120912, end: 20130206
  2. EMEND [Concomitant]
     Active Substance: APREPITANT
     Indication: VOMITING
     Dosage: 125MG/80MG
     Route: 065
  3. BEVACIZUMAB [Suspect]
     Active Substance: BEVACIZUMAB
     Route: 042
     Dates: start: 20130206
  4. BEVACIZUMAB [Suspect]
     Active Substance: BEVACIZUMAB
     Route: 042
     Dates: start: 20121004
  5. IRINOTECAN [Concomitant]
     Active Substance: IRINOTECAN
     Indication: COLORECTAL CANCER
     Dosage: DOSAGES BETWEEN 66MG AND 149MG
     Route: 065
     Dates: start: 20120912, end: 20130206
  6. BEVACIZUMAB [Suspect]
     Active Substance: BEVACIZUMAB
     Indication: COLORECTAL CANCER METASTATIC
     Route: 042
     Dates: start: 20120912
  7. PANTOPRAZOLE [Concomitant]
     Active Substance: PANTOPRAZOLE SODIUM
     Indication: DYSPEPSIA
     Route: 048
  8. PANTOPRAZOLE [Concomitant]
     Active Substance: PANTOPRAZOLE SODIUM
     Indication: GASTRIC PERFORATION
  9. EMEND [Concomitant]
     Active Substance: APREPITANT
     Indication: NAUSEA
  10. FOLINIC ACID [Concomitant]
     Active Substance: LEUCOVORIN
     Indication: COLORECTAL CANCER
     Dosage: DOSAGES BETWEEN 660MG AND 825MG
     Route: 065
     Dates: start: 20120912, end: 20130206
  11. FLUOROURACIL. [Concomitant]
     Active Substance: FLUOROURACIL
     Indication: COLORECTAL CANCER
     Dosage: DOSAGES BETWEEN 660 AND 664MG
     Route: 040
     Dates: start: 20121004, end: 20130206

REACTIONS (6)
  - Malignant neoplasm progression [Fatal]
  - Renal failure acute [Unknown]
  - Pyrexia [Recovered/Resolved]
  - Jaundice [Unknown]
  - Cholestasis [Unknown]
  - Pain [Unknown]

NARRATIVE: CASE EVENT DATE: 20130206
